FAERS Safety Report 12059089 (Version 1)
Quarter: 2016Q1

REPORT INFORMATION
  Report Type: Spontaneous
  Country: US (occurrence: None)
  Receive Date: 20160209
  Receipt Date: 20160209
  Transmission Date: 20160526
  Serious: Yes (Other)
  Sender: FDA-Public Use
  Company Number: None

PATIENT
  Age: 11 Year
  Sex: Male
  Weight: 52 kg

DRUGS (1)
  1. ARIPIPRAZOLE. [Suspect]
     Active Substance: ARIPIPRAZOLE
     Indication: IRRITABILITY
     Route: 048
     Dates: start: 201508

REACTIONS (9)
  - Obsessive-compulsive disorder [None]
  - Anger [None]
  - Condition aggravated [None]
  - Abnormal behaviour [None]
  - Agitation [None]
  - Fatigue [None]
  - Product substitution issue [None]
  - Sleep disorder [None]
  - Disturbance in attention [None]

NARRATIVE: CASE EVENT DATE: 20150831
